FAERS Safety Report 11651504 (Version 1)
Quarter: 2015Q4

REPORT INFORMATION
  Report Type: Spontaneous
  Country: US (occurrence: None)
  Receive Date: 20151020
  Receipt Date: 20151020
  Transmission Date: 20160304
  Serious: Yes (Hospitalization)
  Sender: FDA-Public Use
  Company Number: 1713747-2015-999393

PATIENT
  Sex: Male

DRUGS (6)
  1. OPTIFLUX 160NR DIALYZER [Concomitant]
  2. K@HOME [Concomitant]
  3. NATURALYTE [Concomitant]
     Active Substance: ACETIC ACID\SODIUM ACETATE
  4. HOME HEMO COMBI SET [Concomitant]
  5. LIQUID BICARBONATE [Concomitant]
  6. 0.9% SODIUM CHLORIDE INJECTION [Suspect]
     Active Substance: SODIUM CHLORIDE
     Indication: CHRONIC KIDNEY DISEASE

REACTIONS (1)
  - Dyspnoea [None]

NARRATIVE: CASE EVENT DATE: 20150629
